FAERS Safety Report 12365165 (Version 1)
Quarter: 2016Q2

REPORT INFORMATION
  Report Type: Spontaneous
  Country: US (occurrence: US)
  Receive Date: 20160513
  Receipt Date: 20160513
  Transmission Date: 20160815
  Serious: Yes (Death)
  Sender: FDA-Public Use
  Company Number: US-CTI_01913_2016

PATIENT
  Age: 7 Year
  Sex: Female

DRUGS (2)
  1. BETHKIS [Suspect]
     Active Substance: TOBRAMYCIN
     Indication: LUNG DISORDER
     Route: 055
     Dates: start: 20160317, end: 20160321
  2. BETHKIS [Suspect]
     Active Substance: TOBRAMYCIN
     Indication: OFF LABEL USE
     Route: 055
     Dates: start: 20160317, end: 20160321

REACTIONS (4)
  - Condition aggravated [Fatal]
  - Off label use [Recovered/Resolved]
  - Lung disorder [Fatal]
  - Drug prescribing error [Recovered/Resolved]

NARRATIVE: CASE EVENT DATE: 20160317
